FAERS Safety Report 15138634 (Version 1)
Quarter: 2018Q3

REPORT INFORMATION
  Report Type: Spontaneous
  Country: ES (occurrence: ES)
  Receive Date: 20180713
  Receipt Date: 20180713
  Transmission Date: 20181010
  Serious: Yes (Other)
  Sender: FDA-Public Use
  Company Number: ES-AUROBINDO-AUR-APL-2018-035335

PATIENT
  Age: 43 Year
  Sex: Male
  Weight: 103 kg

DRUGS (1)
  1. SIMVASTATIN. [Suspect]
     Active Substance: SIMVASTATIN
     Indication: PRODUCT USED FOR UNKNOWN INDICATION
     Dosage: 40 MILLIGRAM, DAILY (|| DOSIS UNIDAD FRECUENCIA: 40 MG?MILIGRAMOS || DOSIS POR TOMA: 40 MG?MILIGRAMO
     Route: 048
     Dates: start: 20170912

REACTIONS (2)
  - Erectile dysfunction [Unknown]
  - Asthenia [Unknown]

NARRATIVE: CASE EVENT DATE: 201710
